FAERS Safety Report 17680945 (Version 6)
Quarter: 2020Q4

REPORT INFORMATION
  Report Type: Report from Study
  Country: US (occurrence: US)
  Receive Date: 20200417
  Receipt Date: 20201016
  Transmission Date: 20210113
  Serious: Yes (Other)
  Sender: FDA-Public Use
  Company Number: US-AGIOS-2004US01832

PATIENT

DRUGS (2)
  1. TIBSOVO [Suspect]
     Active Substance: IVOSIDENIB
     Indication: ACUTE MYELOID LEUKAEMIA
     Dosage: 250MG, 2 TABLETS (500MG) DAILY
     Route: 048
     Dates: start: 20190622, end: 20201012
  2. AZACITIDINE. [Concomitant]
     Active Substance: AZACITIDINE
     Indication: ACUTE MYELOID LEUKAEMIA
     Dosage: 136 MILLIGRAM
     Route: 030
     Dates: start: 20190323

REACTIONS (7)
  - Blood count abnormal [Unknown]
  - Toxicity to various agents [Unknown]
  - Drug ineffective [Unknown]
  - Diarrhoea [Unknown]
  - Anaemia [Unknown]
  - Blast cell count increased [Unknown]
  - Neutropenia [Unknown]
